FAERS Safety Report 26129408 (Version 1)
Quarter: 2025Q4

REPORT INFORMATION
  Report Type: Spontaneous
  Country: US (occurrence: US)
  Receive Date: 20251208
  Receipt Date: 20251208
  Transmission Date: 20260118
  Serious: Yes (Other)
  Sender: AMNEAL
  Company Number: US-AMNEAL PHARMACEUTICALS-2025-AMRX-04708

PATIENT
  Age: 29 Year
  Sex: Female

DRUGS (8)
  1. SPIRONOLACTONE [Suspect]
     Active Substance: SPIRONOLACTONE
     Indication: Acne
     Dosage: 50 MILLIGRAM, TABLET ONCE A DAY
     Route: 048
  2. SPIRONOLACTONE [Suspect]
     Active Substance: SPIRONOLACTONE
     Dosage: 100 MILLIGRAM, DAILY
     Route: 065
  3. LAMOTRIGINE [Concomitant]
     Active Substance: LAMOTRIGINE
     Indication: Partial seizures
     Dosage: 300 MILLIGRAM, DAILY
     Route: 065
  4. LAMOTRIGINE [Concomitant]
     Active Substance: LAMOTRIGINE
     Indication: Anxiety
     Dosage: 350 MILLIGRAM, DAILY
  5. FOLIC ACID [Concomitant]
     Active Substance: FOLIC ACID
     Indication: Product used for unknown indication
     Dosage: 1 MILLIGRAM, DAILY
     Route: 065
  6. MIRENA [Concomitant]
     Active Substance: LEVONORGESTREL
     Indication: Product used for unknown indication
     Dosage: INTRAUTERINE DEVICE
     Route: 015
  7. TRETINOIN [Concomitant]
     Active Substance: TRETINOIN
     Indication: Product used for unknown indication
     Dosage: 0.05% CREAM
     Route: 061
  8. CLASCOTERONE [Concomitant]
     Active Substance: CLASCOTERONE
     Indication: Product used for unknown indication
     Dosage: 1% CREAM
     Route: 061

REACTIONS (1)
  - Simple partial seizures [Recovering/Resolving]
